FAERS Safety Report 9415355 (Version 1)
Quarter: 2013Q3

REPORT INFORMATION
  Report Type: Spontaneous
  Country: US (occurrence: US)
  Receive Date: 20130723
  Receipt Date: 20130723
  Transmission Date: 20140515
  Serious: No
  Sender: FDA-Public Use
  Company Number: US-PFIZER INC-2013212486

PATIENT
  Age: 70 Year
  Sex: Male

DRUGS (3)
  1. ADVIL PM [Suspect]
     Indication: SCIATICA
     Dosage: 2 CAPLETS, ONCE A DAY
     Route: 048
     Dates: start: 20130630, end: 2013
  2. ADVIL PM [Suspect]
     Indication: ARTHRALGIA
     Dosage: UNK, ONCE A DAY
     Route: 048
     Dates: start: 2013, end: 20130718
  3. ADVIL PM [Suspect]
     Indication: INSOMNIA

REACTIONS (2)
  - Joint effusion [Not Recovered/Not Resolved]
  - Joint swelling [Not Recovered/Not Resolved]
